FAERS Safety Report 10671538 (Version 1)
Quarter: 2014Q4

REPORT INFORMATION
  Report Type: Spontaneous
  Country: US (occurrence: None)
  Receive Date: 20141222
  Receipt Date: 20141222
  Transmission Date: 20150529
  Serious: Yes (Hospitalization, Disabling)
  Sender: FDA-Public Use
  Company Number: None

PATIENT
  Age: 28 Year
  Sex: Male
  Weight: 58.97 kg

DRUGS (1)
  1. LYRICA [Suspect]
     Active Substance: PREGABALIN
     Indication: FIBROMYALGIA
     Dosage: 1 PIL TWICE DAILY TAKEN BY MOUTH
     Route: 048
     Dates: start: 20141201, end: 20141201

REACTIONS (16)
  - Anxiety [None]
  - Hyperhidrosis [None]
  - Diarrhoea [None]
  - Affect lability [None]
  - Irritability [None]
  - Drug withdrawal syndrome [None]
  - Nausea [None]
  - Insomnia [None]
  - Decreased appetite [None]
  - Bone pain [None]
  - Arthralgia [None]
  - Depression [None]
  - Aggression [None]
  - Chills [None]
  - Vomiting [None]
  - Suicidal ideation [None]

NARRATIVE: CASE EVENT DATE: 20121201
